FAERS Safety Report 5052173-8 (Version None)
Quarter: 2006Q3

REPORT INFORMATION
  Report Type: 
  Country: None (occurrence: None)
  Receive Date: 20060712
  Receipt Date: 20060712
  Transmission Date: 20061208
  Serious: Yes (Hospitalization)
  Sender: FDA-Public Use
  Company Number: None

PATIENT
  Age: 62 Year
  Sex: Male
  Weight: 59 kg

DRUGS (1)
  1. IMIPENEM [Suspect]
     Indication: PNEUMONIA
     Dosage: 1500MG,  500MGQ8H, INTRAVEN
     Route: 042
     Dates: start: 20060327, end: 20060403

REACTIONS (1)
  - CONVULSION [None]
